FAERS Safety Report 10029878 (Version 1)
Quarter: 2014Q1

REPORT INFORMATION
  Report Type: Spontaneous
  Country: US (occurrence: None)
  Receive Date: 20140306
  Receipt Date: 20140306
  Transmission Date: 20141002
  Serious: Yes (Other)
  Sender: FDA-Public Use
  Company Number: 1079349

PATIENT
  Age: 55 Year
  Sex: Female

DRUGS (1)
  1. BONIVA [Suspect]
     Indication: OSTEOPOROSIS PROPHYLAXIS
     Dosage: 150MG, 1 IN 1 M), ORAL
     Route: 048
     Dates: start: 2006, end: 201204

REACTIONS (4)
  - Osteonecrosis of jaw [None]
  - Oesophageal discomfort [None]
  - Arthralgia [None]
  - Myalgia [None]
